FAERS Safety Report 9176551 (Version 1)
Quarter: 2013Q1

REPORT INFORMATION
  Report Type: Spontaneous
  Country: US (occurrence: US)
  Receive Date: 20130321
  Receipt Date: 20130321
  Transmission Date: 20140127
  Serious: Yes (Other)
  Sender: FDA-Public Use
  Company Number: US-JNJFOC-20130306826

PATIENT
  Sex: Female
  Weight: 62.6 kg

DRUGS (4)
  1. DURAGESIC [Suspect]
     Indication: NEOPLASM MALIGNANT
     Route: 062
     Dates: start: 2003, end: 201212
  2. ADDERALL [Suspect]
     Indication: ATTENTION DEFICIT/HYPERACTIVITY DISORDER
     Route: 065
  3. BENICAR HCT [Concomitant]
     Indication: BLOOD PRESSURE
     Route: 065
  4. DURAGESIC [Suspect]
     Indication: NEOPLASM MALIGNANT
     Route: 062
     Dates: start: 201212

REACTIONS (5)
  - Osteoarthritis [Not Recovered/Not Resolved]
  - Blood cholesterol increased [Unknown]
  - Muscle spasms [Recovered/Resolved]
  - Influenza [Recovered/Resolved]
  - Drug tolerance [Unknown]
